FAERS Safety Report 19041860 (Version 1)
Quarter: 2021Q1

REPORT INFORMATION
  Report Type: Spontaneous
  Country: CA (occurrence: CA)
  Receive Date: 20210322
  Receipt Date: 20210322
  Transmission Date: 20210420
  Serious: Yes (Hospitalization, Other)
  Sender: FDA-Public Use
  Company Number: CA-GLAXOSMITHKLINE-CACH2021004168

PATIENT
  Age: 61 Year
  Sex: Male

DRUGS (9)
  1. TERBINAFINE. [Suspect]
     Active Substance: TERBINAFINE
     Indication: PRODUCT USED FOR UNKNOWN INDICATION
     Dosage: UNK UNK, Q3W
     Route: 065
  2. MORPHINE SULFATE. [Suspect]
     Active Substance: MORPHINE SULFATE
     Indication: PRODUCT USED FOR UNKNOWN INDICATION
     Dosage: UNK
     Route: 065
  3. XELODA [Suspect]
     Active Substance: CAPECITABINE
     Indication: PRODUCT USED FOR UNKNOWN INDICATION
     Dosage: UNK
     Route: 065
  4. SPIRONOLACTONE. [Concomitant]
     Active Substance: SPIRONOLACTONE
     Indication: PRODUCT USED FOR UNKNOWN INDICATION
     Dosage: UNK
     Route: 065
  5. POTASSIUM CHLORIDE. [Concomitant]
     Active Substance: POTASSIUM CHLORIDE
     Indication: PRODUCT USED FOR UNKNOWN INDICATION
     Dosage: UNK
     Route: 065
  6. SANDOSTATIN LAR DEPOT [Suspect]
     Active Substance: OCTREOTIDE ACETATE
     Indication: CARCINOID SYNDROME
     Dosage: UNK
     Route: 065
  7. SANDOSTATIN LAR DEPOT [Suspect]
     Active Substance: OCTREOTIDE ACETATE
     Indication: PANCREATIC NEUROENDOCRINE TUMOUR METASTATIC
     Dosage: 30 MG, QMO
     Route: 030
  8. CAPECITABINE. [Concomitant]
     Active Substance: CAPECITABINE
     Indication: PRODUCT USED FOR UNKNOWN INDICATION
     Dosage: UNK
     Route: 065
  9. TEMODAL [Concomitant]
     Active Substance: TEMOZOLOMIDE
     Indication: PRODUCT USED FOR UNKNOWN INDICATION
     Dosage: UNK
     Route: 065

REACTIONS (36)
  - Discomfort [Unknown]
  - Chest pain [Unknown]
  - Faecal volume decreased [Unknown]
  - Nausea [Unknown]
  - Needle issue [Unknown]
  - Periorbital oedema [Unknown]
  - Abdominal distension [Unknown]
  - Feeling cold [Unknown]
  - Gait disturbance [Unknown]
  - Nephrolithiasis [Unknown]
  - Pain [Unknown]
  - Skin warm [Unknown]
  - Cushing^s syndrome [Unknown]
  - Diaphragmatic spasm [Unknown]
  - Dyspnoea [Unknown]
  - Eye swelling [Unknown]
  - Hepatic lesion [Unknown]
  - Swelling face [Unknown]
  - Abdominal pain [Unknown]
  - Rash [Unknown]
  - Chills [Unknown]
  - Biliary obstruction [Unknown]
  - Blood pressure increased [Unknown]
  - Erythema [Unknown]
  - Malaise [Unknown]
  - Peripheral swelling [Unknown]
  - Weight decreased [Unknown]
  - Device occlusion [Unknown]
  - Drug hypersensitivity [Unknown]
  - Dysphagia [Unknown]
  - Fatigue [Unknown]
  - Malignant neoplasm progression [Unknown]
  - Pyrexia [Unknown]
  - Rosacea [Unknown]
  - Swelling of eyelid [Unknown]
  - Vomiting [Unknown]
